FAERS Safety Report 5894130-5 (Version None)
Quarter: 2008Q3

REPORT INFORMATION
  Report Type: 
  Country: None (occurrence: None)
  Receive Date: 20080923
  Receipt Date: 20080117
  Transmission Date: 20090109
  Serious: No
  Sender: FDA-Public Use
  Company Number: US-ASTRAZENECA-2008UW01316

PATIENT
  Age: 13 Year
  Sex: Male

DRUGS (2)
  1. SEROQUEL [Suspect]
     Route: 048
  2. ADD MEDICATION [Concomitant]

REACTIONS (4)
  - CHEST DISCOMFORT [None]
  - EXTRAPYRAMIDAL DISORDER [None]
  - PYREXIA [None]
  - TACHYCARDIA [None]
